FAERS Safety Report 8185047-4 (Version None)
Quarter: 2012Q1

REPORT INFORMATION
  Report Type: 
  Country: None (occurrence: None)
  Receive Date: 20120305
  Receipt Date: 20120223
  Transmission Date: 20120608
  Serious: Yes (Hospitalization)
  Sender: FDA-Public Use
  Company Number: CH-ASTRAZENECA-2012SE13176

PATIENT
  Age: 72 Year
  Sex: Female

DRUGS (12)
  1. SEROQUEL XR [Suspect]
     Route: 048
     Dates: start: 20120123, end: 20120127
  2. DISTRANEURIN [Suspect]
     Route: 048
     Dates: start: 20120124, end: 20120206
  3. BUPRENORPHINE HCL [Suspect]
     Route: 048
     Dates: start: 20120201, end: 20120203
  4. LASIX [Concomitant]
     Indication: RENAL FAILURE CHRONIC
     Route: 048
  5. PRAMIPEXOLE DIHYDROCHLORIDE [Concomitant]
     Dates: end: 20120125
  6. ACETAMINOPHEN [Concomitant]
     Route: 048
  7. PHOSPHONORM [Concomitant]
     Route: 048
  8. LEVOTHYROXINE SODIUM [Concomitant]
     Indication: HYPOTHYROIDISM
     Route: 048
  9. INSULATARD NPH HUMAN [Concomitant]
     Route: 058
  10. ESCITALOPRAM [Suspect]
     Route: 048
     Dates: start: 20120123, end: 20120203
  11. CLOPIXOL [Suspect]
     Route: 048
     Dates: start: 20120127, end: 20120203
  12. METOPROLOL TARTRATE AND HYDROCHLOROTHIAZIDE [Concomitant]
     Route: 048

REACTIONS (4)
  - RENAL FAILURE CHRONIC [None]
  - CONDITION AGGRAVATED [None]
  - CONFUSIONAL STATE [None]
  - DEHYDRATION [None]
